FAERS Safety Report 11154728 (Version 1)
Quarter: 2015Q2

REPORT INFORMATION
  Report Type: Spontaneous
  Country: US (occurrence: None)
  Receive Date: 20150529
  Receipt Date: 20150529
  Transmission Date: 20150821
  Serious: Yes (Hospitalization)
  Sender: FDA-Public Use
  Company Number: US-001975

PATIENT
  Age: 33 Year
  Sex: Female
  Weight: 44 kg

DRUGS (5)
  1. LEVOTHYROXINE [Concomitant]
     Active Substance: LEVOTHYROXINE
  2. CALCIUM [Concomitant]
     Active Substance: CALCIUM
  3. METOPROLOL [Concomitant]
     Active Substance: METOPROLOL
  4. ROCALTROL [Concomitant]
     Active Substance: CALCITRIOL
  5. PARATHYROID HORMONE [Suspect]
     Active Substance: PARATHYROID HORMONE
     Indication: HYPOPARATHYROIDISM
     Dates: start: 20150505

REACTIONS (6)
  - Blood calcium decreased [None]
  - Heart rate increased [None]
  - Gastrointestinal infection [None]
  - Blood potassium decreased [None]
  - Tremor [None]
  - Muscle twitching [None]

NARRATIVE: CASE EVENT DATE: 20150505
